FAERS Safety Report 7033720-3 (Version None)
Quarter: 2010Q4

REPORT INFORMATION
  Report Type: 
  Country: None (occurrence: None)
  Receive Date: 20101007
  Receipt Date: 20100827
  Transmission Date: 20110411
  Serious: Yes (Death, Other)
  Sender: FDA-Public Use
  Company Number: US-BAXTER-2009BH017004

PATIENT
  Age: 83 Year
  Sex: Male

DRUGS (30)
  1. HEPARIN SODIUM INJECTION [Suspect]
     Indication: TRANSIENT ISCHAEMIC ATTACK
     Route: 042
     Dates: start: 20071218, end: 20071218
  2. HEPARIN SODIUM INJECTION [Suspect]
     Indication: ANGIOGRAM CEREBRAL
     Route: 042
     Dates: start: 20071218, end: 20071218
  3. HEPARIN SODIUM INJECTION [Suspect]
     Route: 040
     Dates: start: 20071221, end: 20071221
  4. HEPARIN SODIUM INJECTION [Suspect]
     Route: 040
     Dates: start: 20071221, end: 20071221
  5. HEPARIN SODIUM INJECTION [Suspect]
     Route: 040
     Dates: start: 20071221, end: 20071221
  6. HEPARIN SODIUM INJECTION [Suspect]
     Route: 040
     Dates: start: 20071221, end: 20071221
  7. HEPARIN SODIUM INJECTION [Suspect]
     Route: 040
     Dates: start: 20071224, end: 20071224
  8. HEPARIN SODIUM INJECTION [Suspect]
     Route: 040
     Dates: start: 20071224, end: 20071224
  9. HEPARIN SODIUM 5,000 UNITS IN DEXTROSE 5% [Suspect]
     Indication: TRANSIENT ISCHAEMIC ATTACK
     Route: 042
     Dates: start: 20071218, end: 20071218
  10. HEPARIN SODIUM 5,000 UNITS IN DEXTROSE 5% [Suspect]
     Indication: ANTICOAGULANT THERAPY
     Route: 042
     Dates: start: 20071218, end: 20071218
  11. HEPARIN SODIUM 5,000 UNITS IN DEXTROSE 5% [Suspect]
     Route: 042
     Dates: start: 20071222, end: 20071225
  12. HEPARIN SODIUM 5,000 UNITS IN DEXTROSE 5% [Suspect]
     Route: 042
     Dates: start: 20071222, end: 20071225
  13. WARFARIN SODIUM [Suspect]
     Indication: ANTICOAGULANT THERAPY
     Route: 048
     Dates: start: 20071221, end: 20071222
  14. WARFARIN SODIUM [Suspect]
     Route: 048
     Dates: start: 20071223, end: 20071224
  15. ASPIRIN [Suspect]
     Indication: ANTICOAGULANT THERAPY
     Route: 048
     Dates: start: 20071219, end: 20071225
  16. PLAVIX [Suspect]
     Indication: ANTICOAGULANT THERAPY
     Route: 048
     Dates: start: 20071219, end: 20071225
  17. AGGRENOX [Concomitant]
     Indication: PRODUCT USED FOR UNKNOWN INDICATION
     Route: 065
  18. CELEXA [Concomitant]
     Indication: PRODUCT USED FOR UNKNOWN INDICATION
     Route: 065
  19. GLYBURIDE [Concomitant]
     Indication: PRODUCT USED FOR UNKNOWN INDICATION
     Route: 065
  20. ALTACE [Concomitant]
     Indication: PRODUCT USED FOR UNKNOWN INDICATION
     Route: 065
  21. RESTORIL [Concomitant]
     Indication: PRODUCT USED FOR UNKNOWN INDICATION
     Route: 065
  22. NAPROSYN [Concomitant]
     Indication: PRODUCT USED FOR UNKNOWN INDICATION
     Route: 065
  23. CITALOPRAM HYDROBROMIDE [Concomitant]
     Indication: PRODUCT USED FOR UNKNOWN INDICATION
     Route: 065
  24. TEMAZEPAM [Concomitant]
     Indication: PRODUCT USED FOR UNKNOWN INDICATION
     Route: 065
  25. SIMVASTATIN [Concomitant]
     Indication: PRODUCT USED FOR UNKNOWN INDICATION
     Route: 065
  26. NORVASK [Concomitant]
     Indication: PRODUCT USED FOR UNKNOWN INDICATION
     Route: 065
  27. RISPERDAL [Concomitant]
     Indication: PRODUCT USED FOR UNKNOWN INDICATION
     Route: 065
  28. CLONIDINE [Concomitant]
     Indication: PRODUCT USED FOR UNKNOWN INDICATION
     Route: 065
  29. HYDRALAZINE HCL [Concomitant]
     Indication: PRODUCT USED FOR UNKNOWN INDICATION
     Route: 065
  30. LUPRON [Concomitant]
     Indication: PROSTATE CANCER
     Route: 065

REACTIONS (10)
  - BACK PAIN [None]
  - BRADYCARDIA [None]
  - CONFUSIONAL STATE [None]
  - DYSPNOEA [None]
  - HAEMORRHAGE [None]
  - HYPOTENSION [None]
  - NAUSEA [None]
  - RETROPERITONEAL HAEMATOMA [None]
  - RETROPERITONEAL HAEMORRHAGE [None]
  - UNRESPONSIVE TO STIMULI [None]
